FAERS Safety Report 13714114 (Version 2)
Quarter: 2017Q3

REPORT INFORMATION
  Report Type: Report from Study
  Country: PR (occurrence: PR)
  Receive Date: 20170704
  Receipt Date: 20170717
  Transmission Date: 20171127
  Serious: Yes (Death, Hospitalization, Other)
  Sender: FDA-Public Use
  Company Number: PR-JNJFOC-20170615894

PATIENT
  Age: 67 Year
  Sex: Male
  Weight: 104 kg

DRUGS (14)
  1. IMBRUVICA [Suspect]
     Active Substance: IBRUTINIB
     Indication: METASTASES TO BONE MARROW
     Route: 048
     Dates: start: 201612, end: 201705
  2. IMBRUVICA [Suspect]
     Active Substance: IBRUTINIB
     Indication: METASTASES TO BONE MARROW
     Route: 048
     Dates: end: 20170609
  3. IMBRUVICA [Suspect]
     Active Substance: IBRUTINIB
     Indication: METASTASES TO BONE MARROW
     Route: 048
  4. IMBRUVICA [Suspect]
     Active Substance: IBRUTINIB
     Indication: MANTLE CELL LYMPHOMA
     Route: 048
  5. XARELTO [Concomitant]
     Active Substance: RIVAROXABAN
  6. IMBRUVICA [Suspect]
     Active Substance: IBRUTINIB
     Indication: HODGKIN^S DISEASE STAGE IV
     Route: 048
     Dates: end: 20170609
  7. VALACYCLOVIR [Concomitant]
     Active Substance: VALACYCLOVIR HYDROCHLORIDE
  8. IMBRUVICA [Suspect]
     Active Substance: IBRUTINIB
     Indication: HODGKIN^S DISEASE STAGE IV
     Route: 048
     Dates: start: 201612, end: 201705
  9. VITAMIN D [Concomitant]
     Active Substance: CHOLECALCIFEROL
  10. IMBRUVICA [Suspect]
     Active Substance: IBRUTINIB
     Indication: HODGKIN^S DISEASE STAGE IV
     Route: 048
  11. IMBRUVICA [Suspect]
     Active Substance: IBRUTINIB
     Indication: MANTLE CELL LYMPHOMA
     Route: 048
     Dates: start: 201612, end: 201705
  12. IMBRUVICA [Suspect]
     Active Substance: IBRUTINIB
     Indication: MANTLE CELL LYMPHOMA
     Route: 048
     Dates: end: 20170609
  13. ALLOPURINOL. [Concomitant]
     Active Substance: ALLOPURINOL
  14. HYDROXYUREA. [Concomitant]
     Active Substance: HYDROXYUREA

REACTIONS (10)
  - Shock [Fatal]
  - Acute kidney injury [Unknown]
  - Splenic haemorrhage [Fatal]
  - Drug dose omission [Unknown]
  - White blood cell count abnormal [Unknown]
  - Platelet count decreased [Unknown]
  - Tumour perforation [Recovering/Resolving]
  - Product use in unapproved indication [Unknown]
  - Acute respiratory distress syndrome [Unknown]
  - Off label use [Unknown]

NARRATIVE: CASE EVENT DATE: 20170614
